FAERS Safety Report 4998915-9 (Version None)
Quarter: 2006Q2

REPORT INFORMATION
  Report Type: 
  Country: None (occurrence: None)
  Receive Date: 20060510
  Receipt Date: 20060309
  Transmission Date: 20061013
  Serious: Yes (Hospitalization)
  Sender: FDA-Public Use
  Company Number: US-MERCK-0603USA01629

PATIENT
  Age: 44 Year
  Sex: Female
  Weight: 91 kg

DRUGS (11)
  1. VIOXX [Suspect]
     Indication: BACK PAIN
     Route: 048
     Dates: start: 19991117, end: 20010101
  2. VIOXX [Suspect]
     Route: 048
     Dates: start: 20010101, end: 20010101
  3. VIOXX [Suspect]
     Route: 048
     Dates: start: 20010101, end: 20010101
  4. VIOXX [Suspect]
     Route: 048
     Dates: start: 20020101, end: 20021129
  5. VIOXX [Suspect]
     Indication: SHOULDER PAIN
     Route: 048
     Dates: start: 19991117, end: 20010101
  6. VIOXX [Suspect]
     Route: 048
     Dates: start: 20010101, end: 20010101
  7. VIOXX [Suspect]
     Route: 048
     Dates: start: 20010101, end: 20010101
  8. VIOXX [Suspect]
     Route: 048
     Dates: start: 20020101, end: 20021129
  9. LORTAB [Concomitant]
     Route: 065
  10. SKELAXIN [Concomitant]
     Route: 065
  11. PEPTO-BISMOL [Concomitant]
     Route: 065

REACTIONS (24)
  - ABDOMINAL PAIN UPPER [None]
  - ANAEMIA [None]
  - ASTHENIA [None]
  - BACK PAIN [None]
  - CARDIAC DISORDER [None]
  - CHEST DISCOMFORT [None]
  - CHEST PAIN [None]
  - CHRONIC OBSTRUCTIVE PULMONARY DISEASE [None]
  - COR PULMONALE [None]
  - CORONARY ARTERY DISEASE [None]
  - DEPRESSION [None]
  - DYSPEPSIA [None]
  - DYSPNOEA [None]
  - FATIGUE [None]
  - JOINT SPRAIN [None]
  - MENORRHAGIA [None]
  - MITRAL VALVE INCOMPETENCE [None]
  - MYOCARDIAL INFARCTION [None]
  - NECK INJURY [None]
  - OVERDOSE [None]
  - PRODUCTIVE COUGH [None]
  - TENDONITIS [None]
  - UTERINE MASS [None]
  - WHEEZING [None]
